FAERS Safety Report 11730494 (Version 1)
Quarter: 2015Q4

REPORT INFORMATION
  Report Type: Spontaneous
  Country: US (occurrence: US)
  Receive Date: 20151110
  Receipt Date: 20151110
  Transmission Date: 20160304
  Serious: No
  Sender: FDA-Public Use
  Company Number: US-ELI_LILLY_AND_COMPANY-US201202001116

PATIENT
  Sex: Female

DRUGS (8)
  1. KLONOPIN [Concomitant]
     Active Substance: CLONAZEPAM
  2. SYNTHROID [Concomitant]
     Active Substance: LEVOTHYROXINE SODIUM
  3. DIOVAN [Concomitant]
     Active Substance: VALSARTAN
  4. GABAPENTIN. [Concomitant]
     Active Substance: GABAPENTIN
  5. VIVANT [Concomitant]
  6. VITAMINS NOS [Concomitant]
     Active Substance: VITAMINS
  7. CYMBALTA [Concomitant]
     Active Substance: DULOXETINE HYDROCHLORIDE
     Dosage: 90 MG, UNKNOWN
  8. FORTEO [Suspect]
     Active Substance: TERIPARATIDE
     Indication: OSTEOPOROSIS
     Dosage: 20 UG, QD
     Route: 065
     Dates: start: 20120106, end: 20120127

REACTIONS (4)
  - Somnolence [Unknown]
  - Asthenia [Unknown]
  - Memory impairment [Unknown]
  - Fatigue [Unknown]
